FAERS Safety Report 7522627-0 (Version None)
Quarter: 2011Q2

REPORT INFORMATION
  Report Type: 
  Country: None (occurrence: None)
  Receive Date: 20110603
  Receipt Date: 20110519
  Transmission Date: 20111010
  Serious: No
  Sender: FDA-Public Use
  Company Number: US-B.I. PHARMACEUTICALS,INC./RIDGEFIELD-2011-BP-13566BP

PATIENT
  Age: 74 Year
  Sex: Female

DRUGS (9)
  1. LEVOXYL [Concomitant]
     Indication: HYPOTHYROIDISM
     Route: 048
  2. MULTI-VITAMIN [Concomitant]
     Indication: PROPHYLAXIS
     Route: 048
  3. PRADAXA [Suspect]
     Indication: ATRIAL FIBRILLATION
     Dosage: 300 MG
     Route: 048
     Dates: start: 20101201
  4. FISH OIL [Suspect]
     Indication: PROPHYLAXIS
     Route: 048
  5. PROPAFENONE HCL [Concomitant]
     Indication: ATRIAL FIBRILLATION
     Route: 048
  6. CALCIUM AND VIT D [Concomitant]
     Indication: PROPHYLAXIS
     Route: 048
  7. ATENOLOL [Concomitant]
     Indication: HYPERTENSION
     Route: 048
  8. ASPIRIN [Suspect]
     Indication: PROPHYLAXIS
     Dosage: 325 MG
     Route: 048
  9. CHLORTHALIDONE [Concomitant]
     Indication: HYPERTENSION
     Route: 048

REACTIONS (2)
  - HEADACHE [None]
  - MUSCULOSKELETAL STIFFNESS [None]
